FAERS Safety Report 8590529-7 (Version None)
Quarter: 2012Q3

REPORT INFORMATION
  Report Type: 
  Country: None (occurrence: None)
  Receive Date: 20120813
  Receipt Date: 20120802
  Transmission Date: 20120928
  Serious: No
  Sender: FDA-Public Use
  Company Number: US-ASTRAZENECA-2011SE21443

PATIENT
  Age: 45 Year
  Sex: Female

DRUGS (4)
  1. ATACAND [Suspect]
     Route: 048
  2. PRILOSEC [Suspect]
     Route: 048
  3. LISINOPRIL [Suspect]
     Route: 048
  4. NEXIUM [Suspect]
     Route: 048

REACTIONS (11)
  - MUSCLE TIGHTNESS [None]
  - STRESS [None]
  - MALAISE [None]
  - PANIC ATTACK [None]
  - MIGRAINE [None]
  - DRUG DOSE OMISSION [None]
  - GASTROOESOPHAGEAL REFLUX DISEASE [None]
  - ANXIETY [None]
  - COUGH [None]
  - CHEST PAIN [None]
  - BLOOD PRESSURE ABNORMAL [None]
